FAERS Safety Report 4746486-4 (Version None)
Quarter: 2005Q3

REPORT INFORMATION
  Report Type: 
  Country: None (occurrence: None)
  Receive Date: 20050815
  Receipt Date: 20050728
  Transmission Date: 20060218
  Serious: Yes (Hospitalization)
  Sender: FDA-Public Use
  Company Number: DSA_26808_2005

PATIENT
  Age: 17 Year
  Sex: Female

DRUGS (3)
  1. LORAZEPAM [Suspect]
     Dates: start: 20050725, end: 20050725
  2. CHITOSANO [Suspect]
     Indication: WEIGHT CONTROL
     Dosage: 8000 MG ONCE
     Dates: start: 20050725, end: 20050725
  3. UNKNOWN [Suspect]
     Dates: start: 20050725, end: 20050725

REACTIONS (4)
  - DIARRHOEA [None]
  - FATIGUE [None]
  - OVERDOSE [None]
  - VOMITING [None]
